FAERS Safety Report 9036511 (Version 1)
Quarter: 2013Q1

REPORT INFORMATION
  Report Type: Spontaneous
  Country: US (occurrence: None)
  Receive Date: 20130123
  Receipt Date: 20130123
  Transmission Date: 20140127
  Serious: Yes (Hospitalization, Disabling)
  Sender: FDA-Public Use
  Company Number: None

PATIENT
  Age: 86 Year
  Sex: Female

DRUGS (2)
  1. AMIODARONE [Suspect]
     Indication: ARRHYTHMIA
     Dates: start: 20130106, end: 20130107
  2. AMIODARONE [Suspect]
     Indication: CARDIOVERSION
     Dates: start: 20130106, end: 20130107

REACTIONS (6)
  - Restlessness [None]
  - Dyspnoea [None]
  - Body temperature decreased [None]
  - Hepatotoxicity [None]
  - Multi-organ failure [None]
  - Cardiac failure [None]
